FAERS Safety Report 6110186-9 (Version None)
Quarter: 2009Q1

REPORT INFORMATION
  Report Type: 
  Country: None (occurrence: None)
  Receive Date: 20090310
  Receipt Date: 20090302
  Transmission Date: 20090719
  Serious: Yes (Hospitalization)
  Sender: FDA-Public Use
  Company Number: US-ABBOTT-09P-163-0559952-00

PATIENT
  Sex: Male
  Weight: 50.1 kg

DRUGS (3)
  1. HUMIRA [Suspect]
     Indication: CROHN'S DISEASE
     Route: 058
     Dates: start: 20090213, end: 20090213
  2. NEXIUM [Concomitant]
     Indication: GASTROOESOPHAGEAL REFLUX DISEASE
     Dosage: UNKNOWN
     Route: 048
     Dates: start: 20090217
  3. ZINC SULFATE [Concomitant]
     Indication: ZINC DEFICIENCY
     Dosage: UNKNOWN
     Route: 048
     Dates: start: 20090217

REACTIONS (10)
  - CHILLS [None]
  - DIZZINESS [None]
  - HYPONATRAEMIA [None]
  - HYPOTENSION [None]
  - HYPOXIA [None]
  - PNEUMONIA [None]
  - POOR QUALITY SLEEP [None]
  - RENAL FAILURE ACUTE [None]
  - SEPSIS [None]
  - WHITE BLOOD CELL COUNT INCREASED [None]
